FAERS Safety Report 4799845-8 (Version None)
Quarter: 2005Q4

REPORT INFORMATION
  Report Type: 
  Country: None (occurrence: None)
  Receive Date: 20051012
  Receipt Date: 20051012
  Transmission Date: 20060501
  Serious: No
  Sender: FDA-Public Use
  Company Number: None

PATIENT
  Age: 6 Year
  Sex: Male

DRUGS (1)
  1. LINEZOLID [Suspect]

REACTIONS (2)
  - OPTIC NEUROPATHY [None]
  - VISUAL DISTURBANCE [None]
